FAERS Safety Report 17052222 (Version 1)
Quarter: 2019Q4

REPORT INFORMATION
  Report Type: Spontaneous
  Country: US (occurrence: US)
  Receive Date: 20191021
  Receipt Date: 20191021
  Transmission Date: 20200122
  Serious: No
  Sender: FDA-Public Use
  Company Number: None

PATIENT
  Age: 50 Year
  Sex: Female

DRUGS (1)
  1. ZOFRAN ODT [Suspect]
     Active Substance: ONDANSETRON HYDROCHLORIDE
     Route: 060
     Dates: start: 2018

REACTIONS (2)
  - Abdominal pain upper [None]
  - Product taste abnormal [None]

NARRATIVE: CASE EVENT DATE: 20191021
